FAERS Safety Report 15236779 (Version 1)
Quarter: 2018Q3

REPORT INFORMATION
  Report Type: Spontaneous
  Country: US (occurrence: US)
  Receive Date: 20180710
  Receipt Date: 20180710
  Transmission Date: 20181010
  Serious: Yes (Hospitalization)
  Sender: FDA-Public Use
  Company Number: None

PATIENT
  Age: 70 Year
  Sex: Female
  Weight: 64 kg

DRUGS (9)
  1. REQUIP [Concomitant]
     Active Substance: ROPINIROLE HYDROCHLORIDE
  2. PREDNISONE. [Concomitant]
     Active Substance: PREDNISONE
  3. NEPHRO VITE RX [Concomitant]
     Active Substance: ASCORBIC ACID\BIOTIN\CALCIUM PANTOTHENATE\CYANOCOBALAMIN\FOLIC ACID\NIACINAMIDE\PYRIDOXINE HYDROCHLORIDE\RIBOFLAVIN\THIAMINE MONONITRATE
  4. ZANTAC [Concomitant]
     Active Substance: RANITIDINE HYDROCHLORIDE
  5. CYANOCOBALAMIN. [Concomitant]
     Active Substance: CYANOCOBALAMIN
  6. MYPAINAWAY FIBROCREAM WITH ARNICA AS ACTIVE INGREDIENT [Suspect]
     Active Substance: HOMEOPATHICS
     Indication: DRY SKIN
     Dosage: ?          OTHER FREQUENCY:UNKNOWN;?
     Route: 061
  7. VENTOLIN [Concomitant]
     Active Substance: ALBUTEROL SULFATE
  8. PROTONIX [Concomitant]
     Active Substance: PANTOPRAZOLE SODIUM
  9. PERCOCET [Concomitant]
     Active Substance: ACETAMINOPHEN\OXYCODONE HYDROCHLORIDE

REACTIONS (6)
  - Chills [None]
  - Erythema [None]
  - Hypophagia [None]
  - Rash pruritic [None]
  - Condition aggravated [None]
  - Application site exfoliation [None]

NARRATIVE: CASE EVENT DATE: 20180709
